FAERS Safety Report 5423288-7 (Version None)
Quarter: 2007Q3

REPORT INFORMATION
  Report Type: 
  Country: None (occurrence: None)
  Receive Date: 20070823
  Receipt Date: 20070814
  Transmission Date: 20080115
  Serious: Yes (Other)
  Sender: FDA-Public Use
  Company Number: PHBS2007IT13608

PATIENT
  Age: 51 Year
  Sex: Male

DRUGS (5)
  1. BROMOCRIPTINE MESYLATE [Suspect]
     Indication: PARKINSON'S DISEASE
     Dosage: VARIOUS DOSAGES
  2. BROMOCRIPTINE MESYLATE [Suspect]
     Dosage: UP TO 30 MG/DAY
  3. BROMOCRIPTINE MESYLATE [Suspect]
     Dosage: 20 MG, QD
  4. CARBIDOPA AND LEVODOPA [Suspect]
     Indication: PARKINSON'S DISEASE
     Dosage: 1200/300 MG/DAY
  5. LEVODOPA BENSERAZIDE HYDROCHLO [Suspect]
     Indication: PARKINSON'S DISEASE

REACTIONS (9)
  - DEEP BRAIN STIMULATION [None]
  - DEPRESSION [None]
  - DRUG ABUSER [None]
  - DYSKINESIA [None]
  - GAMBLING [None]
  - MENTAL DISORDER [None]
  - MUSCLE RIGIDITY [None]
  - NEUROTRANSMITTER LEVEL ALTERED [None]
  - ON AND OFF PHENOMENON [None]
